FAERS Safety Report 13950216 (Version 1)
Quarter: 2017Q3

REPORT INFORMATION
  Report Type: Spontaneous
  Country: US (occurrence: US)
  Receive Date: 20170908
  Receipt Date: 20170908
  Transmission Date: 20171128
  Serious: Yes (Other)
  Sender: FDA-Public Use
  Company Number: US-ROCHE-1136090

PATIENT
  Sex: Male

DRUGS (6)
  1. CYTOXAN [Concomitant]
     Active Substance: CYCLOPHOSPHAMIDE
  2. NEUPOGEN [Concomitant]
     Active Substance: FILGRASTIM
  3. COUMADIN [Concomitant]
     Active Substance: WARFARIN SODIUM
  4. RITUXAN [Suspect]
     Active Substance: RITUXIMAB
     Indication: OFF LABEL USE
  5. RITUXAN [Suspect]
     Active Substance: RITUXIMAB
     Indication: LYMPHOMA
     Route: 065
     Dates: start: 20000215
  6. RITUXAN [Suspect]
     Active Substance: RITUXIMAB
     Indication: B-CELL LYMPHOMA

REACTIONS (7)
  - Cough [Unknown]
  - Seborrhoeic keratosis [Unknown]
  - Asthenia [Unknown]
  - Alopecia [Unknown]
  - Lymphoma transformation [Unknown]
  - Thermal burn [Unknown]
  - Pleural effusion [Unknown]
